FAERS Safety Report 19907296 (Version 2)
Quarter: 2021Q4

REPORT INFORMATION
  Report Type: Spontaneous
  Country: DE (occurrence: DE)
  Receive Date: 20211001
  Receipt Date: 20211025
  Transmission Date: 20220304
  Serious: No
  Sender: FDA-Public Use
  Company Number: DE-UCBSA-2021046582

PATIENT
  Sex: Female

DRUGS (2)
  1. NEUPRO [Suspect]
     Active Substance: ROTIGOTINE
     Indication: Restless legs syndrome
     Dosage: 1MG
  2. NEUPRO [Suspect]
     Active Substance: ROTIGOTINE
     Dosage: 2MG

REACTIONS (1)
  - Product adhesion issue [Unknown]
